FAERS Safety Report 9757059 (Version 1)
Quarter: 2013Q4

REPORT INFORMATION
  Report Type: Report from Study
  Country: US (occurrence: US)
  Receive Date: 20131213
  Receipt Date: 20131213
  Transmission Date: 20140711
  Serious: Yes (Death)
  Sender: FDA-Public Use
  Company Number: US-PFIZER INC-2013355272

PATIENT
  Age: 64 Year
  Sex: Female

DRUGS (2)
  1. FENTANYL [Suspect]
     Dosage: 75 UG/H TOTAL DOSE
     Route: 062
  2. OXYCODONE HYDROCHLORIDE [Suspect]
     Dosage: UNK

REACTIONS (1)
  - Overdose [Fatal]
